FAERS Safety Report 6191781-8 (Version None)
Quarter: 2009Q2

REPORT INFORMATION
  Report Type: 
  Country: None (occurrence: None)
  Receive Date: 20090515
  Receipt Date: 20090505
  Transmission Date: 20091009
  Serious: Yes (Other)
  Sender: FDA-Public Use
  Company Number: BR-ELI_LILLY_AND_COMPANY-BR200905000900

PATIENT
  Sex: Female

DRUGS (3)
  1. PROZAC [Suspect]
     Dosage: UNK, UNKNOWN
     Route: 065
  2. AMITRIPTLINE HYDROCHLORIDE TAB [Concomitant]
  3. DIAZEPAM [Concomitant]

REACTIONS (2)
  - DRUG INEFFECTIVE [None]
  - WEIGHT INCREASED [None]
